FAERS Safety Report 16730411 (Version 2)
Quarter: 2019Q3

REPORT INFORMATION
  Report Type: Report from Study
  Country: DE (occurrence: DE)
  Receive Date: 20190822
  Receipt Date: 20190909
  Transmission Date: 20191005
  Serious: Yes (Hospitalization)
  Sender: FDA-Public Use
  Company Number: DE-BRISTOL-MYERS SQUIBB COMPANY-BMS-2019-079263

PATIENT
  Age: 78 Year
  Sex: Male
  Weight: 72 kg

DRUGS (2)
  1. IPILIMUMAB [Suspect]
     Active Substance: IPILIMUMAB
     Indication: OESOPHAGEAL SQUAMOUS CELL CARCINOMA
     Dosage: 1 DOSAGE FORM
     Route: 065
     Dates: start: 20180711, end: 20190725
  2. NIVOLUMAB [Suspect]
     Active Substance: NIVOLUMAB
     Indication: OESOPHAGEAL SQUAMOUS CELL CARCINOMA
     Dosage: 1 DOSAGE FORM
     Route: 065
     Dates: start: 20180503, end: 20190725

REACTIONS (1)
  - Hypertension [Recovered/Resolved]

NARRATIVE: CASE EVENT DATE: 20190808
